FAERS Safety Report 5781651-9 (Version None)
Quarter: 2008Q2

REPORT INFORMATION
  Report Type: 
  Country: None (occurrence: None)
  Receive Date: 20080623
  Receipt Date: 20080612
  Transmission Date: 20081010
  Serious: Yes (Life-Threatening, Hospitalization)
  Sender: FDA-Public Use
  Company Number: GB-AMGEN-UK267718

PATIENT
  Sex: Male
  Weight: 84 kg

DRUGS (2)
  1. PANITUMUMAB [Suspect]
     Indication: COLORECTAL CANCER
     Route: 042
     Dates: start: 20071112, end: 20080131
  2. IRINOTECAN HCL [Suspect]
     Route: 042
     Dates: start: 20071112, end: 20080131

REACTIONS (5)
  - COLITIS ISCHAEMIC [None]
  - INTESTINAL PERFORATION [None]
  - PERITONITIS [None]
  - SEPSIS [None]
  - SMALL INTESTINAL OBSTRUCTION [None]
